FAERS Safety Report 14365491 (Version 1)
Quarter: 2018Q1

REPORT INFORMATION
  Report Type: Report from Study
  Country: JP (occurrence: JP)
  Receive Date: 20180108
  Receipt Date: 20180108
  Transmission Date: 20180509
  Serious: Yes (Other)
  Sender: FDA-Public Use
  Company Number: JP-ALXN-A201714674AA

PATIENT
  Sex: Female

DRUGS (2)
  1. SOLIRIS [Suspect]
     Active Substance: ECULIZUMAB
     Dosage: 300 MG, QW
     Route: 042
     Dates: start: 20130906
  2. SOLIRIS [Suspect]
     Active Substance: ECULIZUMAB
     Indication: HAEMOLYTIC URAEMIC SYNDROME
     Dosage: 150 MG, SINGLE
     Route: 042
     Dates: start: 20130830, end: 20130830

REACTIONS (2)
  - Gastroenteritis [Unknown]
  - Pneumonia [Unknown]

NARRATIVE: CASE EVENT DATE: 20171218
